FAERS Safety Report 18889803 (Version 8)
Quarter: 2022Q1

REPORT INFORMATION
  Report Type: Report from Study
  Country: CO (occurrence: CO)
  Receive Date: 20210213
  Receipt Date: 20220104
  Transmission Date: 20220424
  Serious: Yes (Death, Hospitalization)
  Sender: FDA-Public Use
  Company Number: NVSC2021CO030863

PATIENT
  Sex: Male

DRUGS (1)
  1. ELTROMBOPAG OLAMINE [Suspect]
     Active Substance: ELTROMBOPAG OLAMINE
     Indication: Immune thrombocytopenia
     Dosage: 50 MG, QD
     Route: 048

REACTIONS (9)
  - Cerebrovascular accident [Fatal]
  - Contusion [Fatal]
  - Ill-defined disorder [Fatal]
  - Pericarditis [Unknown]
  - Venous occlusion [Unknown]
  - Platelet disorder [Unknown]
  - Platelet count decreased [Unknown]
  - Petechiae [Unknown]
  - Therapeutic product effect incomplete [Unknown]
